FAERS Safety Report 6504303-6 (Version None)
Quarter: 2009Q4

REPORT INFORMATION
  Report Type: 
  Country: None (occurrence: None)
  Receive Date: 20091215
  Receipt Date: 20091120
  Transmission Date: 20100525
  Serious: Yes (Life-Threatening, Other)
  Sender: FDA-Public Use
  Company Number: 002698

PATIENT
  Age: 64 Year
  Sex: Male

DRUGS (3)
  1. NEUPRO [Suspect]
     Indication: RESTLESS LEGS SYNDROME
  2. FENTANYL-100 [Concomitant]
  3. ROPINIROLE [Concomitant]

REACTIONS (7)
  - ASPIRATION [None]
  - BRAIN STEM INFARCTION [None]
  - CARDIAC ARREST [None]
  - GASTROINTESTINAL NECROSIS [None]
  - REFLUX OESOPHAGITIS [None]
  - TRANSIENT ISCHAEMIC ATTACK [None]
  - VERTEBRAL ARTERY OCCLUSION [None]
